FAERS Safety Report 11220907 (Version 3)
Quarter: 2015Q3

REPORT INFORMATION
  Report Type: Report from Study
  Country: CA (occurrence: CA)
  Receive Date: 20150626
  Receipt Date: 20150715
  Transmission Date: 20151125
  Serious: Yes (Hospitalization)
  Sender: FDA-Public Use
  Company Number: PHHY2014CA162232

PATIENT
  Age: 71 Year
  Sex: Female

DRUGS (3)
  1. SANDOSTATIN [Suspect]
     Active Substance: OCTREOTIDE ACETATE
     Dosage: 200 UG, TID
     Route: 058
     Dates: start: 20150102
  2. SANDOSTATIN [Suspect]
     Active Substance: OCTREOTIDE ACETATE
     Indication: OESOPHAGEAL SQUAMOUS CELL CARCINOMA
     Dosage: 100 UG, TID (TO CONTINUE 2 WEEKS POST FIRST LAR DOSE)
     Route: 058
     Dates: start: 201411, end: 201412
  3. SANDOSTATIN LAR DEPOT [Suspect]
     Active Substance: OCTREOTIDE ACETATE
     Indication: OESOPHAGEAL SQUAMOUS CELL CARCINOMA
     Dosage: 20 MG, QMO (EVERY 4 WEEKS)
     Route: 030
     Dates: start: 20141208, end: 2015

REACTIONS (4)
  - Feeding disorder [Unknown]
  - Heart rate irregular [Unknown]
  - Off label use [Unknown]
  - Dehydration [Unknown]

NARRATIVE: CASE EVENT DATE: 20141208
